FAERS Safety Report 15664571 (Version 1)
Quarter: 2018Q4

REPORT INFORMATION
  Report Type: Spontaneous
  Country: US (occurrence: US)
  Receive Date: 20181127
  Receipt Date: 20181127
  Transmission Date: 20190205
  Serious: Yes (Other)
  Sender: FDA-Public Use
  Company Number: None

PATIENT
  Age: 90 Year
  Sex: Male
  Weight: 73.39 kg

DRUGS (10)
  1. CAPECITABINE. [Suspect]
     Active Substance: CAPECITABINE
     Indication: COLON CANCER
     Route: 048
     Dates: start: 20180723, end: 20181127
  2. ELIQUIS [Concomitant]
     Active Substance: APIXABAN
  3. LIDOCAINE. [Concomitant]
     Active Substance: LIDOCAINE
  4. OMEGA 3 [Concomitant]
     Active Substance: OMEGA-3 FATTY ACIDS
  5. NITROGLYCERIN. [Concomitant]
     Active Substance: NITROGLYCERIN
  6. VITAMIN B12 ER [Concomitant]
  7. SIMVASTATIN. [Concomitant]
     Active Substance: SIMVASTATIN
  8. LOSARTAN. [Concomitant]
     Active Substance: LOSARTAN
  9. ONDESARTAN [Concomitant]
  10. METOPROLOL. [Concomitant]
     Active Substance: METOPROLOL

REACTIONS (1)
  - Disease progression [None]

NARRATIVE: CASE EVENT DATE: 20181127
